FAERS Safety Report 6453793-6 (Version None)
Quarter: 2009Q4

REPORT INFORMATION
  Report Type: 
  Country: None (occurrence: None)
  Receive Date: 20091124
  Receipt Date: 20091120
  Transmission Date: 20100525
  Serious: Yes (Other)
  Sender: FDA-Public Use
  Company Number: US-RB-025475-09

PATIENT
  Age: 25 Year
  Sex: Female

DRUGS (2)
  1. SUBOXONE [Suspect]
     Dosage: DOSING INFORMATION UNKNOWN
     Route: 065
     Dates: start: 20080101, end: 20090317
  2. PROMETHAZINE [Concomitant]
     Indication: NAUSEA
     Dosage: DOSING INFORMATION UNKNOWN
     Route: 065

REACTIONS (12)
  - ANXIETY [None]
  - ASTHENIA [None]
  - DEHYDRATION [None]
  - DIARRHOEA [None]
  - DRUG EXPOSURE DURING PREGNANCY [None]
  - DRUG WITHDRAWAL SYNDROME [None]
  - MYALGIA [None]
  - NAUSEA [None]
  - PANIC ATTACK [None]
  - SYNCOPE [None]
  - VOMITING [None]
  - WEIGHT DECREASED [None]
